FAERS Safety Report 4346864-1 (Version None)
Quarter: 2004Q1

REPORT INFORMATION
  Report Type: 
  Country: None (occurrence: None)
  Receive Date: 20040329
  Receipt Date: 20031209
  Transmission Date: 20041129
  Serious: No
  Sender: FDA-Public Use
  Company Number: USA031254384

PATIENT
  Age: 12 Year
  Sex: Male
  Weight: 109 kg

DRUGS (2)
  1. STRATTERA [Suspect]
     Dosage: 40 MG/IN THE EVENING
     Dates: start: 20031204, end: 20031207
  2. CONCERTA [Concomitant]

REACTIONS (8)
  - BLOOD PRESSURE INCREASED [None]
  - ERYTHEMA [None]
  - FATIGUE [None]
  - FEELING ABNORMAL [None]
  - FEELING HOT [None]
  - HEART RATE INCREASED [None]
  - INSOMNIA [None]
  - PYREXIA [None]
